FAERS Safety Report 9865998 (Version 1)
Quarter: 2014Q1

REPORT INFORMATION
  Report Type: Spontaneous
  Country: US (occurrence: US)
  Receive Date: 20140203
  Receipt Date: 20140203
  Transmission Date: 20141002
  Serious: No
  Sender: FDA-Public Use
  Company Number: US-ALLERGAN-1313668US

PATIENT
  Age: 76 Year
  Sex: Female

DRUGS (6)
  1. RESTASIS [Suspect]
     Indication: DRY EYE
     Dosage: 1 GTT, BID
     Route: 047
     Dates: start: 201308
  2. REFRESH OPTIVE [Concomitant]
     Indication: DRY EYE
     Dosage: UNK, PRN
     Route: 047
  3. VIGAMOX [Concomitant]
     Indication: POSTOPERATIVE CARE
     Dosage: UNK
     Route: 047
     Dates: end: 20130905
  4. PROLENSA [Concomitant]
     Indication: POSTOPERATIVE CARE
     Dosage: 1 GTT, QD
     Route: 047
     Dates: start: 201308
  5. PREDNISOLONE [Concomitant]
     Indication: POSTOPERATIVE CARE
     Dosage: 1 GTT, TID
     Route: 047
     Dates: start: 201308
  6. OCUVITE                            /01053801/ [Concomitant]
     Indication: SUPPLEMENTATION THERAPY
     Dosage: UNK
     Route: 048

REACTIONS (4)
  - Oropharyngeal discomfort [Recovered/Resolved]
  - Wrong technique in drug usage process [Unknown]
  - Eye irritation [Not Recovered/Not Resolved]
  - Lacrimation increased [Not Recovered/Not Resolved]
